FAERS Safety Report 24651338 (Version 1)
Quarter: 2024Q4

REPORT INFORMATION
  Report Type: Spontaneous
  Country: FR (occurrence: FR)
  Receive Date: 20241122
  Receipt Date: 20241122
  Transmission Date: 20250115
  Serious: Yes (Other)
  Sender: ACCORD
  Company Number: None

PATIENT
  Age: 62 Year
  Sex: Male
  Weight: 67 kg

DRUGS (3)
  1. ETOPOSIDE [Suspect]
     Active Substance: ETOPOSIDE
     Indication: Bronchial carcinoma
     Dosage: D1-D2-D3
     Dates: start: 20230602, end: 20230816
  2. CARBOPLATIN [Suspect]
     Active Substance: CARBOPLATIN
     Indication: Bronchial carcinoma
     Dosage: AUC 5 D1, MEDAC
     Dates: start: 20230602, end: 20230816
  3. DURVALUMAB [Suspect]
     Active Substance: DURVALUMAB
     Indication: Bronchial carcinoma
     Dosage: D1, IMFINZI
     Dates: start: 20230628, end: 20230816

REACTIONS (1)
  - Fatigue [Recovering/Resolving]

NARRATIVE: CASE EVENT DATE: 20230713
